FAERS Safety Report 21356036 (Version 1)
Quarter: 2022Q3

REPORT INFORMATION
  Report Type: Spontaneous
  Country: US (occurrence: US)
  Receive Date: 20220920
  Receipt Date: 20220920
  Transmission Date: 20221027
  Serious: No
  Sender: FDA-Public Use
  Company Number: US-MYLANLABS-2022M1089645

PATIENT
  Sex: Female

DRUGS (1)
  1. SCOPOLAMINE [Suspect]
     Active Substance: SCOPOLAMINE
     Indication: Vertigo
     Dosage: 1 MILLIGRAM, Q3D (1 MG/ 72 HR)
     Route: 062

REACTIONS (3)
  - Product adhesion issue [Unknown]
  - Product size issue [Unknown]
  - Product use in unapproved indication [Unknown]
